FAERS Safety Report 7121213-4 (Version None)
Quarter: 2010Q4

REPORT INFORMATION
  Report Type: 
  Country: None (occurrence: None)
  Receive Date: 20101124
  Receipt Date: 20101112
  Transmission Date: 20110411
  Serious: Yes (Hospitalization)
  Sender: FDA-Public Use
  Company Number: PHHY2010CH77034

PATIENT
  Sex: Female

DRUGS (6)
  1. RITALIN [Suspect]
     Dosage: MATERNAL DOSE 10 MG/DAY
     Route: 064
     Dates: start: 20100601
  2. CONCERTA [Suspect]
     Dosage: MATERNAL DOSE 72 MG/DAY
     Route: 064
     Dates: start: 20100601
  3. KEPPRA [Suspect]
     Dosage: MATERNAL DOSE 1000 MG/DAY
     Route: 064
  4. MORPHINE [Suspect]
     Dosage: MATERNAL DOSE 80 MG/DAY
     Route: 064
  5. MORPHINE [Suspect]
     Dosage: 50 MCG/KG EVERY 6 HOURS
  6. TRAMADOL HCL [Suspect]
     Dosage: MATERNAL DOSE 300 MG/DAY
     Route: 064

REACTIONS (2)
  - DRUG EXPOSURE DURING PREGNANCY [None]
  - DRUG WITHDRAWAL SYNDROME NEONATAL [None]
